FAERS Safety Report 13625280 (Version 1)
Quarter: 2017Q2

REPORT INFORMATION
  Report Type: Spontaneous
  Country: US (occurrence: US)
  Receive Date: 20170607
  Receipt Date: 20170607
  Transmission Date: 20170830
  Serious: No
  Sender: FDA-Public Use
  Company Number: US-BAUSCH-BL-2016-016883

PATIENT
  Age: 73 Year
  Sex: Female
  Weight: 64.47 kg

DRUGS (1)
  1. LOTEPREDNOL ETABONATE OPHTHALMIC OINTMENT 0.5% [Suspect]
     Active Substance: LOTEPREDNOL ETABONATE
     Indication: VISION BLURRED
     Dosage: ONE APPLICATION TO LEFT EYE ONCE
     Route: 047
     Dates: start: 20160710, end: 20160725

REACTIONS (3)
  - Off label use [Recovered/Resolved]
  - Condition aggravated [Not Recovered/Not Resolved]
  - Vision blurred [Not Recovered/Not Resolved]

NARRATIVE: CASE EVENT DATE: 20160710
